FAERS Safety Report 23604125 (Version 1)
Quarter: 2024Q1

REPORT INFORMATION
  Report Type: Spontaneous
  Country: GB (occurrence: GB)
  Receive Date: 20240307
  Receipt Date: 20240307
  Transmission Date: 20240410
  Serious: Yes (Other)
  Sender: FDA-Public Use
  Company Number: None

PATIENT
  Age: 34 Year
  Sex: Female
  Weight: 66.6 kg

DRUGS (5)
  1. VENLAFAXINE [Suspect]
     Active Substance: VENLAFAXINE HYDROCHLORIDE
     Dosage: ONE TO BE TAKEN TWICE A DAY
     Route: 065
     Dates: start: 20240209
  2. ESCITALOPRAM [Concomitant]
     Active Substance: ESCITALOPRAM OXALATE
     Dosage: TAKE HALF A TABLET IN THE MORNING FOR 1 WEEK, THEN INCREASE TO ONE TABLET IN THE MORNING
     Dates: start: 20231221
  3. MORPHINE [Concomitant]
     Active Substance: MORPHINE
     Dosage: 1.25ML - 5ML 3-4HOURLY IF NEEDED
     Dates: start: 20240216
  4. MIRTAZAPINE [Concomitant]
     Active Substance: MIRTAZAPINE
     Dosage: ONE TO BE TAKEN AT NIGHT, DURATION: 50 DAYS
     Dates: start: 20231221, end: 20240209
  5. PREGABALIN [Concomitant]
     Active Substance: PREGABALIN
     Indication: Fibromyalgia
     Dosage: ONE TO BE TAKEN TWICE A DAY
     Dates: start: 20231221

REACTIONS (1)
  - Aggression [Recovered/Resolved]
